FAERS Safety Report 22096843 (Version 1)
Quarter: 2023Q1

REPORT INFORMATION
  Report Type: Spontaneous
  Country: US (occurrence: US)
  Receive Date: 20230315
  Receipt Date: 20230315
  Transmission Date: 20230417
  Serious: No
  Sender: FDA-Public Use
  Company Number: US-ASTELLAS-2022US039718

PATIENT
  Sex: Female

DRUGS (1)
  1. CRESEMBA [Suspect]
     Active Substance: ISAVUCONAZONIUM SULFATE
     Indication: Meningitis cryptococcal
     Dosage: UNK UNK, UNKNOWN FREQ.
     Route: 048
     Dates: start: 202210, end: 202210

REACTIONS (4)
  - Pyrexia [Unknown]
  - Gastrointestinal disorder [Unknown]
  - Off label use [Unknown]
  - Product availability issue [Unknown]

NARRATIVE: CASE EVENT DATE: 20221001
